FAERS Safety Report 18823181 (Version 1)
Quarter: 2021Q1

REPORT INFORMATION
  Report Type: Spontaneous
  Country: CA (occurrence: CA)
  Receive Date: 20210202
  Receipt Date: 20210202
  Transmission Date: 20210419
  Serious: Yes (Other)
  Sender: FDA-Public Use
  Company Number: CA-BAUSCH-BL-2021-003892

PATIENT
  Age: 28 Year
  Sex: Male
  Weight: 86 kg

DRUGS (2)
  1. ZAXINE (RIFAXIMIN) [Suspect]
     Active Substance: RIFAXIMIN
     Indication: PRODUCT USE IN UNAPPROVED INDICATION
  2. ZAXINE (RIFAXIMIN) [Suspect]
     Active Substance: RIFAXIMIN
     Indication: POUCHITIS
     Route: 048
     Dates: start: 20210119

REACTIONS (3)
  - Genital hypoaesthesia [Not Recovered/Not Resolved]
  - Erectile dysfunction [Not Recovered/Not Resolved]
  - Product use in unapproved indication [Unknown]

NARRATIVE: CASE EVENT DATE: 202101
